FAERS Safety Report 17898578 (Version 1)
Quarter: 2020Q2

REPORT INFORMATION
  Report Type: Spontaneous
  Country: JP (occurrence: JP)
  Receive Date: 20200615
  Receipt Date: 20200615
  Transmission Date: 20200714
  Serious: Yes (Death, Hospitalization, Other)
  Sender: FDA-Public Use
  Company Number: JP-PFIZER INC-2020224697

PATIENT
  Age: 69 Year
  Sex: Female
  Weight: 33.1 kg

DRUGS (8)
  1. CEFTAZIDIME MYLAN [Suspect]
     Active Substance: CEFTAZIDIME
     Indication: PNEUMONIA BACTERIAL
     Dosage: 2 G, 3X/DAY
     Route: 041
     Dates: start: 20191126, end: 20191205
  2. PREDONINE [Concomitant]
     Active Substance: PREDNISOLONE
  3. BACTRAMIN [Concomitant]
     Active Substance: SULFAMETHOXAZOLE\TRIMETHOPRIM
  4. VFEND [Suspect]
     Active Substance: VORICONAZOLE
     Indication: BRONCHOPULMONARY ASPERGILLOSIS
     Dosage: 130 MG, 2X/DAY
     Route: 041
     Dates: start: 20191203, end: 20191204
  5. FUNGUARD [Suspect]
     Active Substance: MICAFUNGIN SODIUM
     Indication: BRONCHOPULMONARY ASPERGILLOSIS
     Dosage: 150 MG, 1X/DAY
     Route: 041
     Dates: start: 20191205, end: 20191205
  6. LANSOPRAZOLE. [Concomitant]
     Active Substance: LANSOPRAZOLE
  7. SODIUM CHLORIDE. [Concomitant]
     Active Substance: SODIUM CHLORIDE
  8. ABILIFY [Suspect]
     Active Substance: ARIPIPRAZOLE
     Indication: ANXIETY DISORDER
     Dosage: 3 MG, 1X/DAY
     Route: 048
     Dates: start: 20191121, end: 20191204

REACTIONS (16)
  - Enanthema [Unknown]
  - Hypercapnia [Unknown]
  - Rash [Recovering/Resolving]
  - Drug eruption [Unknown]
  - Rash papular [Unknown]
  - Lip erosion [Unknown]
  - Hepatic function abnormal [Unknown]
  - Altered state of consciousness [Unknown]
  - Lung opacity [Recovering/Resolving]
  - Cardiac disorder [Unknown]
  - Oxygen saturation decreased [Unknown]
  - Stevens-Johnson syndrome [Unknown]
  - Chapped lips [Unknown]
  - Respiratory fatigue [Fatal]
  - Toxic epidermal necrolysis [Not Recovered/Not Resolved]
  - Pyrexia [Unknown]

NARRATIVE: CASE EVENT DATE: 2019
